FAERS Safety Report 7742066-7 (Version None)
Quarter: 2011Q3

REPORT INFORMATION
  Report Type: 
  Country: None (occurrence: None)
  Receive Date: 20110912
  Receipt Date: 20110831
  Transmission Date: 20111222
  Serious: Yes (Hospitalization)
  Sender: FDA-Public Use
  Company Number: PHHO2011NL11251

PATIENT
  Sex: Female
  Weight: 46 kg

DRUGS (5)
  1. PROGRAF [Suspect]
     Indication: RENAL TRANSPLANT
     Dosage: 5 MG, BID
     Dates: start: 20110410
  2. AMLODIPINE [Concomitant]
     Indication: HYPERTENSION
     Dosage: UNK
     Dates: start: 20110411
  3. MYCOPHENOLIC ACID [Suspect]
     Indication: RENAL TRANSPLANT
     Dosage: 360 MG, BID
     Dates: start: 20110410, end: 20110504
  4. SIMULECT [Suspect]
     Indication: RENAL TRANSPLANT
     Dosage: 20 MG, BID
     Dates: start: 20110410, end: 20110504
  5. SELOKEEN [Concomitant]
     Indication: HYPERTENSION
     Dosage: UNK
     Dates: start: 20110411, end: 20110604

REACTIONS (2)
  - PYELONEPHRITIS [None]
  - URINARY TRACT INFECTION [None]
